FAERS Safety Report 8504282 (Version 2)
Quarter: 2012Q4

REPORT INFORMATION
  Report Type: 
  Country: US (occurrence: US)
  Receive Date: 20120411
  Receipt Date: 20120829
  Transmission Date: 20130627
  Serious: Yes (Hospitalization)
  Sender: FDA-Public Use
  Company Number: US-GLAXOSMITHKLINE-A0923838A

PATIENT
  Age: 64 Year
  Sex: Female

DRUGS (1)
  1. AVANDIA [Suspect]
     Indication: DIABETES MELLITUS
     Dosage: 4MG Per day
     Route: 048
     Dates: start: 2007, end: 2009

REACTIONS (5)
  - Hypertension [Recovering/Resolving]
  - Migraine [Unknown]
  - Hemiparesis [Unknown]
  - Dizziness [Unknown]
  - Fatigue [Unknown]
